FAERS Safety Report 8112129-5 (Version None)
Quarter: 2012Q1

REPORT INFORMATION
  Report Type: 
  Country: None (occurrence: None)
  Receive Date: 20120203
  Receipt Date: 20120201
  Transmission Date: 20120608
  Serious: Yes (Hospitalization, Congenital Anomaly, Other)
  Sender: FDA-Public Use
  Company Number: US-PFIZER INC-2011268383

PATIENT
  Sex: Male
  Weight: 3.495 kg

DRUGS (2)
  1. MULTI-VITAMINS [Concomitant]
     Dosage: UNK
     Route: 064
  2. ZOLOFT [Suspect]
     Dosage: 100 MG, UNK
     Route: 064
     Dates: start: 20060614

REACTIONS (11)
  - LOBAR PNEUMONIA [None]
  - CARDIAC FAILURE [None]
  - FEEDING DISORDER [None]
  - ATRIAL SEPTAL DEFECT [None]
  - CARDIOMEGALY [None]
  - MATERNAL EXPOSURE TIMING UNSPECIFIED [None]
  - LEFT VENTRICULAR HYPERTROPHY [None]
  - PULMONARY ARTERY STENOSIS CONGENITAL [None]
  - WEIGHT DECREASED [None]
  - VENTRICULAR SEPTAL DEFECT [None]
  - BUNDLE BRANCH BLOCK RIGHT [None]
